FAERS Safety Report 8862944 (Version 1)
Quarter: 2012Q4

REPORT INFORMATION
  Report Type: 
  Country: FR (occurrence: FR)
  Receive Date: 20121026
  Receipt Date: 20121026
  Transmission Date: 20130627
  Serious: Yes (Hospitalization)
  Sender: FDA-Public Use
  Company Number: PHHY2012FR094560

PATIENT
  Sex: Male

DRUGS (1)
  1. CERTICAN [Suspect]
     Route: 048
     Dates: end: 200707

REACTIONS (3)
  - Interstitial lung disease [Recovered/Resolved with Sequelae]
  - Dyspnoea [Unknown]
  - Pulmonary fibrosis [Recovered/Resolved with Sequelae]
